FAERS Safety Report 7096103-6 (Version None)
Quarter: 2010Q4

REPORT INFORMATION
  Report Type: 
  Country: None (occurrence: None)
  Receive Date: 20101111
  Receipt Date: 20101101
  Transmission Date: 20110411
  Serious: Yes (Other)
  Sender: FDA-Public Use
  Company Number: US-ROCHE-718708

PATIENT
  Sex: Female
  Weight: 77.1 kg

DRUGS (1)
  1. ACCUTANE [Suspect]
     Indication: ACNE
     Route: 065
     Dates: start: 19950401, end: 19960501

REACTIONS (8)
  - CROHN'S DISEASE [None]
  - DEPRESSION [None]
  - FIBROMYALGIA [None]
  - GASTROINTESTINAL INJURY [None]
  - INFLAMMATORY BOWEL DISEASE [None]
  - IRON DEFICIENCY ANAEMIA [None]
  - ORAL HERPES [None]
  - SYSTEMIC LUPUS ERYTHEMATOSUS [None]
